FAERS Safety Report 16086739 (Version 6)
Quarter: 2019Q2

REPORT INFORMATION
  Report Type: Spontaneous
  Country: BR (occurrence: BR)
  Receive Date: 20190318
  Receipt Date: 20190412
  Transmission Date: 20190711
  Serious: Yes (Other)
  Sender: FDA-Public Use
  Company Number: PHHY2019BR050003

PATIENT
  Age: 61 Year
  Sex: Male
  Weight: 84 kg

DRUGS (9)
  1. LACRIMA PLUS (ALC) [Suspect]
     Active Substance: DEXTRAN 70\HYPROMELLOSES
     Indication: DRY EYE
     Dosage: UNK
     Route: 047
     Dates: start: 2018
  2. TRAVOPROSTA [Concomitant]
     Active Substance: TRAVOPROST
     Indication: GLAUCOMA
     Dosage: 1 GTT, QD
     Route: 047
     Dates: start: 2018, end: 201809
  3. VERTIX [Concomitant]
     Indication: LABYRINTHITIS
     Dosage: 2 DF, QD
     Route: 048
     Dates: start: 2018, end: 201903
  4. TRAVATAN Z [Suspect]
     Active Substance: TRAVOPROST
     Indication: GLAUCOMA
     Dosage: 1 GTT, QD
     Route: 047
     Dates: start: 2014, end: 201809
  5. OPTIVE [Suspect]
     Active Substance: CARBOXYMETHYLCELLULOSE SODIUM\GLYCERIN
     Indication: DRY EYE
     Dosage: UNK UNK, PRN
     Route: 047
     Dates: start: 2018
  6. LABIRIN [Concomitant]
     Active Substance: BETAHISTINE
     Indication: LABYRINTHITIS
     Dosage: 2 DF, QD
     Route: 048
     Dates: start: 2018, end: 201903
  7. TIMOLOL. [Suspect]
     Active Substance: TIMOLOL
     Dosage: 1 GTT, BID
     Route: 047
     Dates: start: 201903
  8. OCUPRESS [Concomitant]
     Active Substance: CARTEOLOL HYDROCHLORIDE
     Indication: PHOTOPHOBIA
     Route: 065
  9. TIMOLOL. [Suspect]
     Active Substance: TIMOLOL
     Indication: GLAUCOMA
     Dosage: 1 GTT, QD
     Route: 047
     Dates: start: 2011, end: 2014

REACTIONS (21)
  - Arrhythmia [Unknown]
  - Headache [Recovered/Resolved]
  - Drug ineffective [Not Recovered/Not Resolved]
  - Prostatic specific antigen increased [Not Recovered/Not Resolved]
  - Hypertension [Not Recovered/Not Resolved]
  - Tinnitus [Unknown]
  - Nervousness [Unknown]
  - Gait disturbance [Unknown]
  - Vertigo [Unknown]
  - Weight increased [Recovered/Resolved]
  - Nasal dryness [Not Recovered/Not Resolved]
  - Pruritus [Not Recovered/Not Resolved]
  - Fall [Unknown]
  - Dermatitis allergic [Not Recovered/Not Resolved]
  - Joint injury [Recovering/Resolving]
  - Discomfort [Unknown]
  - Product quality issue [Unknown]
  - Dizziness [Recovering/Resolving]
  - Visual acuity reduced [Not Recovered/Not Resolved]
  - Disorder of orbit [Not Recovered/Not Resolved]
  - Growth of eyelashes [Not Recovered/Not Resolved]

NARRATIVE: CASE EVENT DATE: 2018
